FAERS Safety Report 17575745 (Version 1)
Quarter: 2020Q1

REPORT INFORMATION
  Report Type: Spontaneous
  Country: CN (occurrence: CN)
  Receive Date: 20200324
  Receipt Date: 20200324
  Transmission Date: 20200409
  Serious: Yes (Other)
  Sender: FDA-Public Use
  Company Number: CN-BAYER-2020-046018

PATIENT
  Age: 25 Year
  Sex: Female

DRUGS (1)
  1. YASMIN [Suspect]
     Active Substance: DROSPIRENONE\ETHINYL ESTRADIOL
     Indication: ENDOMETRIAL DISORDER
     Dosage: UNK
     Route: 048
     Dates: start: 201907, end: 201911

REACTIONS (8)
  - Headache [None]
  - Polycystic ovaries [None]
  - Product use in unapproved indication [None]
  - Galactorrhoea [None]
  - Off label use [None]
  - Abnormal withdrawal bleeding [None]
  - Pituitary tumour [None]
  - Withdrawal bleed [None]

NARRATIVE: CASE EVENT DATE: 2019
